FAERS Safety Report 20546776 (Version 5)
Quarter: 2024Q1

REPORT INFORMATION
  Report Type: Spontaneous
  Country: US (occurrence: US)
  Receive Date: 20220303
  Receipt Date: 20240315
  Transmission Date: 20240410
  Serious: Yes (Hospitalization, Disabling, Other)
  Sender: FDA-Public Use
  Company Number: US-ORGANON-O2203USA000170

PATIENT
  Sex: Female

DRUGS (4)
  1. SINGULAIR [Suspect]
     Active Substance: MONTELUKAST SODIUM
     Indication: Asthma
  2. SINGULAIR [Suspect]
     Active Substance: MONTELUKAST SODIUM
     Indication: Hypersensitivity
  3. ALBUTEROL [Concomitant]
     Active Substance: ALBUTEROL
     Indication: Asthma
     Dosage: UNK
     Dates: start: 2006, end: 2016
  4. ALBUTEROL [Concomitant]
     Active Substance: ALBUTEROL
     Indication: Hypersensitivity

REACTIONS (16)
  - Neuropsychological symptoms [Not Recovered/Not Resolved]
  - Suicidal behaviour [Not Recovered/Not Resolved]
  - Hallucination [Not Recovered/Not Resolved]
  - Suicidal ideation [Not Recovered/Not Resolved]
  - Bipolar disorder [Not Recovered/Not Resolved]
  - Major depression [Not Recovered/Not Resolved]
  - Intentional self-injury [Unknown]
  - Affective disorder [Unknown]
  - Attention deficit hyperactivity disorder [Unknown]
  - Obsessive-compulsive disorder [Not Recovered/Not Resolved]
  - Impulsive behaviour [Unknown]
  - Agitation [Unknown]
  - Aggression [Unknown]
  - Psychomotor hyperactivity [Unknown]
  - Homicidal ideation [Unknown]
  - Oppositional defiant disorder [Unknown]

NARRATIVE: CASE EVENT DATE: 20060101
